FAERS Safety Report 24703096 (Version 1)
Quarter: 2024Q4

REPORT INFORMATION
  Report Type: Spontaneous
  Country: US (occurrence: US)
  Receive Date: 20241205
  Receipt Date: 20241205
  Transmission Date: 20250115
  Serious: Yes (Other)
  Sender: PFIZER
  Company Number: US-MLMSERVICE-20241120-PI257557-00072-1

PATIENT
  Age: 73 Year
  Sex: Female
  Weight: 102 kg

DRUGS (22)
  1. BUPIVACAINE HYDROCHLORIDE [Suspect]
     Active Substance: BUPIVACAINE HYDROCHLORIDE
     Indication: Sedation
     Dosage: 50 MG
  2. BUPIVACAINE HYDROCHLORIDE [Suspect]
     Active Substance: BUPIVACAINE HYDROCHLORIDE
     Indication: Spinal anaesthesia
     Dosage: 12.5 MG
  3. DEXAMETHASONE [Suspect]
     Active Substance: DEXAMETHASONE
     Indication: Nerve block
     Dosage: 5 MG
  4. METHYLPREDNISOLONE [Concomitant]
     Active Substance: METHYLPREDNISOLONE
     Indication: Multiple sclerosis
     Dosage: UNK
     Route: 042
  5. ALBUTEROL [Concomitant]
     Active Substance: ALBUTEROL
     Dosage: RESCUE INHALER
     Route: 055
  6. ASPIRIN [Concomitant]
     Active Substance: ASPIRIN
  7. CARISOPRODOL [Concomitant]
     Active Substance: CARISOPRODOL
     Indication: Multiple sclerosis
     Dosage: UNK
     Route: 042
  8. DILTIAZEM [Concomitant]
     Active Substance: DILTIAZEM
  9. GABAPENTIN [Concomitant]
     Active Substance: GABAPENTIN
  10. LISINOPRIL [Concomitant]
     Active Substance: LISINOPRIL
  11. OXAZEPAM [Concomitant]
     Active Substance: OXAZEPAM
  12. ACETAMINOPHEN [Concomitant]
     Active Substance: ACETAMINOPHEN
     Indication: Analgesic therapy
  13. DIMENHYDRINATE [Concomitant]
     Active Substance: DIMENHYDRINATE
     Indication: Analgesic therapy
  14. OXYCODONE [Concomitant]
     Active Substance: OXYCODONE
     Indication: Analgesic therapy
  15. CELECOXIB [Concomitant]
     Active Substance: CELECOXIB
     Indication: Analgesic therapy
  16. MIDAZOLAM [Concomitant]
     Active Substance: MIDAZOLAM
     Indication: Sedation
     Dosage: 2 MG
  17. FENTANYL [Concomitant]
     Active Substance: FENTANYL
     Indication: Sedation
     Dosage: 50 UG
  18. PROPOFOL [Concomitant]
     Active Substance: PROPOFOL
     Indication: Sedation
     Dosage: INFUSION
  19. ROPIVACAINE [Concomitant]
     Active Substance: ROPIVACAINE
     Dosage: 150 MG
     Route: 052
  20. EPINEPHRINE [Concomitant]
     Active Substance: EPINEPHRINE
     Dosage: 1 MG
     Route: 052
  21. KETOROLAC [Concomitant]
     Active Substance: KETOROLAC TROMETHAMINE
     Dosage: 30 MG
     Route: 052
  22. CLONIDINE [Concomitant]
     Active Substance: CLONIDINE
     Dosage: 80 UG
     Route: 052

REACTIONS (2)
  - Spinal disorder [Recovered/Resolved]
  - Myoclonus [Recovered/Resolved]
